FAERS Safety Report 15133852 (Version 2)
Quarter: 2018Q3

REPORT INFORMATION
  Report Type: Spontaneous
  Country: US (occurrence: US)
  Receive Date: 20180712
  Receipt Date: 20180724
  Transmission Date: 20181010
  Serious: No
  Sender: FDA-Public Use
  Company Number: PHEH2018US028601

PATIENT
  Sex: Female

DRUGS (1)
  1. KISQALI [Suspect]
     Active Substance: RIBOCICLIB
     Indication: BREAST CANCER
     Dosage: 600 MG (3 TABS) DAILY FOR 21 DAYS THEN 7 DAYS OFF
     Route: 048
     Dates: start: 20180625

REACTIONS (1)
  - White blood cell count decreased [Unknown]
